FAERS Safety Report 9976153 (Version 1)
Quarter: 2014Q1

REPORT INFORMATION
  Report Type: Report from Study
  Country: US (occurrence: US)
  Receive Date: 20140306
  Receipt Date: 20140306
  Transmission Date: 20141002
  Serious: No
  Sender: FDA-Public Use
  Company Number: US-ABBVIE-13P-163-1167276-00

PATIENT
  Age: 28 Year
  Sex: Male

DRUGS (7)
  1. HUMIRA [Suspect]
     Indication: CROHN^S DISEASE
     Dates: start: 20131022
  2. TYLENOL [Concomitant]
     Indication: PAIN
  3. ZYRTEC [Concomitant]
     Indication: SEASONAL ALLERGY
  4. FLONASE [Concomitant]
     Indication: SEASONAL ALLERGY
  5. SUBUTEX [Concomitant]
     Indication: OPIATES
     Dosage: 2MG SUBLINGUAL DAILY
  6. XANAX [Concomitant]
     Indication: ANXIETY
     Dosage: DAILY
  7. PRILOSEC [Concomitant]
     Indication: GASTROOESOPHAGEAL REFLUX DISEASE
     Dosage: DAILY

REACTIONS (3)
  - Device malfunction [Recovered/Resolved]
  - Incorrect dose administered [Recovered/Resolved]
  - Injection site haemorrhage [Recovered/Resolved]
